FAERS Safety Report 7586757-X (Version None)
Quarter: 2011Q3

REPORT INFORMATION
  Report Type: 
  Country: None (occurrence: None)
  Receive Date: 20110701
  Receipt Date: 20110627
  Transmission Date: 20111222
  Serious: Yes (Disabling, Other)
  Sender: FDA-Public Use
  Company Number: US-MERCK-1106USA01159

PATIENT
  Age: 76 Year
  Sex: Female

DRUGS (9)
  1. HORMONES (UNSPECIFIED) [Concomitant]
     Route: 065
     Dates: start: 20000101, end: 20020101
  2. GLUCOSAMINE [Concomitant]
     Route: 065
  3. FOSAMAX [Suspect]
     Indication: OSTEOPOROSIS
     Route: 048
     Dates: start: 20000101, end: 20090615
  4. CALCIUM (UNSPECIFIED) AND VITAMIN D (UNSPECIFIED) [Concomitant]
     Route: 065
  5. FOSAMAX [Suspect]
     Indication: OSTEOPOROSIS PROPHYLAXIS
     Route: 048
     Dates: start: 20000101, end: 20090615
  6. FOLIC ACID [Concomitant]
     Route: 065
  7. ONE-A-DAY ESSENTIAL VITAMINS [Concomitant]
     Route: 065
  8. FOSAMAX [Suspect]
     Route: 048
     Dates: start: 20000101, end: 20090615
  9. FOSAMAX [Suspect]
     Route: 048
     Dates: start: 20000101, end: 20090615

REACTIONS (14)
  - GINGIVAL DISORDER [None]
  - UPPER LIMB FRACTURE [None]
  - DENTAL CARIES [None]
  - DEVICE FAILURE [None]
  - FEMUR FRACTURE [None]
  - PAIN IN EXTREMITY [None]
  - ORAL DISORDER [None]
  - GALLBLADDER DISORDER [None]
  - GLAUCOMA [None]
  - INCONTINENCE [None]
  - HYPOTENSION [None]
  - TOOTH DISORDER [None]
  - ARTHROPATHY [None]
  - OXYGEN SATURATION DECREASED [None]
